FAERS Safety Report 10174320 (Version 1)
Quarter: 2014Q2

REPORT INFORMATION
  Report Type: Spontaneous
  Country: US (occurrence: US)
  Receive Date: 20140515
  Receipt Date: 20140515
  Transmission Date: 20141212
  Serious: Yes (Other)
  Sender: FDA-Public Use
  Company Number: US-ELI_LILLY_AND_COMPANY-US201405001185

PATIENT
  Sex: Male

DRUGS (2)
  1. HUMULIN NPH [Suspect]
     Indication: TYPE 2 DIABETES MELLITUS
     Dosage: 50 U, EACH EVENING
     Route: 065
     Dates: start: 2003
  2. ACTOS [Concomitant]
     Dosage: 45 MG, QD

REACTIONS (2)
  - Limb injury [Recovered/Resolved]
  - Muscular weakness [Not Recovered/Not Resolved]
